FAERS Safety Report 13878758 (Version 3)
Quarter: 2017Q4

REPORT INFORMATION
  Report Type: Report from Study
  Country: US (occurrence: US)
  Receive Date: 20170817
  Receipt Date: 20171016
  Transmission Date: 20180320
  Serious: Yes (Other)
  Sender: FDA-Public Use
  Company Number: US-BAYER-2017-133521

PATIENT
  Age: 83 Year
  Sex: Female

DRUGS (2)
  1. STIVARGA [Suspect]
     Active Substance: REGORAFENIB
     Indication: COLON CANCER
     Dosage: 80 MG DAILY
     Route: 048
     Dates: start: 20170705, end: 201707
  2. STIVARGA [Suspect]
     Active Substance: REGORAFENIB
     Indication: COLON CANCER
     Dosage: 80 MG DAILY
     Route: 048
     Dates: start: 2017

REACTIONS (11)
  - Dyspnoea [None]
  - Fatigue [None]
  - Blister [Recovering/Resolving]
  - Constipation [None]
  - Pain in extremity [None]
  - Joint swelling [None]
  - Off label use [None]
  - Sleep disorder [None]
  - Dry skin [None]
  - Dysphonia [Not Recovered/Not Resolved]
  - Hypertension [None]

NARRATIVE: CASE EVENT DATE: 201707
